FAERS Safety Report 25666175 (Version 1)
Quarter: 2025Q3

REPORT INFORMATION
  Report Type: Spontaneous
  Country: EU (occurrence: EU)
  Receive Date: 20250811
  Receipt Date: 20250811
  Transmission Date: 20251020
  Serious: Yes (Life-Threatening, Hospitalization, Other)
  Sender: MYLAN
  Company Number: RE-AMGEN-FRASP2025123911

PATIENT
  Age: 55 Year
  Sex: Female

DRUGS (21)
  1. DEXAMETHASONE [Suspect]
     Active Substance: DEXAMETHASONE
     Indication: Plasma cell myeloma
  2. KYPROLIS [Suspect]
     Active Substance: CARFILZOMIB
     Indication: Plasma cell myeloma
  3. KYPROLIS [Suspect]
     Active Substance: CARFILZOMIB
  4. KYPROLIS [Suspect]
     Active Substance: CARFILZOMIB
     Dosage: 56 MILLIGRAM/SQ. METER, QMO
     Dates: start: 201912
  5. KYPROLIS [Suspect]
     Active Substance: CARFILZOMIB
  6. POMALIDOMIDE [Suspect]
     Active Substance: POMALIDOMIDE
     Indication: Plasma cell myeloma
  7. INFLUENZA VIRUS VACCINE [Concomitant]
     Active Substance: INFLUENZA VIRUS VACCINE
  8. RAMIPRIL [Concomitant]
     Active Substance: RAMIPRIL
     Dosage: 5 MILLIGRAM, QD
  9. KARDEGIC [Concomitant]
     Active Substance: ASPIRIN DL-LYSINE
     Dosage: 75 MILLIGRAM, QD (1 SACHET PER DAY)
  10. BACTRIM [Concomitant]
     Active Substance: SULFAMETHOXAZOLE\TRIMETHOPRIM
  11. LEUCOVORIN CALCIUM [Concomitant]
     Active Substance: LEUCOVORIN CALCIUM
  12. PENICILLIN V [Concomitant]
     Active Substance: PENICILLIN V
     Dosage: 1 MILLI-INTERNATIONAL UNIT, BID (1 TABLET MORNING AND EVENING)
  13. VALACYCLOVIR HYDROCHLORIDE [Concomitant]
     Active Substance: VALACYCLOVIR HYDROCHLORIDE
     Dosage: 500 MILLIGRAM, BID (1 TABLET MORNING AND EVENING)
  14. CALCIUM CARBONATE\CHOLECALCIFEROL [Concomitant]
     Active Substance: CALCIUM CARBONATE\CHOLECALCIFEROL
     Dosage: 1 GRAM, QD
  15. CHOLECALCIFEROL [Concomitant]
     Active Substance: CHOLECALCIFEROL
     Dosage: 50000 INTERNATIONAL UNIT, MONTHLY  (1 AMPOULE PER MONTH)
  16. MAGNESIUM [Concomitant]
     Active Substance: MAGNESIUM
     Dosage: UNK UNK, QD
  17. LENOGRASTIM [Concomitant]
     Active Substance: LENOGRASTIM
     Dosage: UNK UNK, MONTHLY (1 TO 2 INJECTIONS PER MONTH DURING THE 4TH WEEK OF THE CYCLE (1 CYCLE LASTS 1 MONTH))
  18. GAVISCON [Concomitant]
     Active Substance: ALUMINUM HYDROXIDE\MAGNESIUM CARBONATE
     Indication: Abdominal pain upper
     Dosage: UNK UNK, QD (1 SACHET IF GASTRIC PAIN, MAXIMUM 3 PER DAY)
  19. MELPHALAN [Concomitant]
     Active Substance: MELPHALAN
     Indication: Plasma cell myeloma
  20. COVID-19 vaccine [Concomitant]
  21. COVERAM [Concomitant]
     Active Substance: AMLODIPINE\PERINDOPRIL
     Dosage: UNK UNK, QD (10/10: 1 TABLET IN THE MORNING)

REACTIONS (13)
  - Thrombotic microangiopathy [Recovering/Resolving]
  - Acute kidney injury [Recovering/Resolving]
  - Bronchiolitis [Unknown]
  - Pneumonia parainfluenzae viral [Unknown]
  - Pulmonary oedema [Unknown]
  - Haemolytic uraemic syndrome [Unknown]
  - Jugular vein occlusion [Unknown]
  - Oedema peripheral [Unknown]
  - Diarrhoea [Unknown]
  - Hyponatraemia [Unknown]
  - Hypertension [Unknown]
  - Therapy interrupted [Unknown]
  - Off label use [Unknown]

NARRATIVE: CASE EVENT DATE: 20191201
